FAERS Safety Report 6498168-9 (Version None)
Quarter: 2009Q4

REPORT INFORMATION
  Report Type: 
  Country: None (occurrence: None)
  Receive Date: 20091125
  Receipt Date: 20090123
  Transmission Date: 20100525
  Serious: Yes (Hospitalization)
  Sender: FDA-Public Use
  Company Number: 2009BH001292

PATIENT
  Age: 52 Year
  Sex: Female

DRUGS (18)
  1. DIANEAL [Suspect]
     Indication: RENAL FAILURE
     Dosage: 14.5 L; EVERY DAY; IP
     Route: 033
     Dates: start: 20070315
  2. DIANEAL [Suspect]
     Indication: RENAL FAILURE
     Dosage: 2.5 L;EVERY DAY; IP
     Route: 033
     Dates: start: 20070110
  3. HEPARIN [Concomitant]
  4. SENSIPAR [Concomitant]
  5. PHOSLO [Concomitant]
  6. ZEMPLAR [Concomitant]
  7. ELAVIL [Concomitant]
  8. EPOGEN [Concomitant]
  9. NASONEX [Concomitant]
  10. LIPITOR [Concomitant]
  11. GABAPENTIN [Concomitant]
  12. DIALYVITE [Concomitant]
  13. AMBIEN [Concomitant]
  14. RENAGEL [Concomitant]
  15. POTASSIUM CHLORIDE [Concomitant]
  16. ACTOS [Concomitant]
  17. SINATA [Concomitant]
  18. MIRALAX [Concomitant]

REACTIONS (3)
  - NAUSEA [None]
  - PERITONITIS BACTERIAL [None]
  - VOMITING [None]
